FAERS Safety Report 4686496-9 (Version None)
Quarter: 2005Q2

REPORT INFORMATION
  Report Type: 
  Country: None (occurrence: None)
  Receive Date: 20050609
  Receipt Date: 20050530
  Transmission Date: 20051028
  Serious: Yes (Hospitalization)
  Sender: FDA-Public Use
  Company Number: FR-SANOFI-SYNTHELABO-A02200501434

PATIENT
  Age: 67 Year
  Sex: Female

DRUGS (3)
  1. STILNOX [Suspect]
     Indication: DRUG USE FOR UNKNOWN INDICATION
     Dosage: UNK
     Route: 048
     Dates: end: 20041001
  2. STILNOX [Suspect]
     Dosage: ZOLPIDEM DOSE REGIMEN INCREASE NOS
     Route: 048
     Dates: start: 20041001, end: 20050228
  3. STILNOX [Suspect]
     Dosage: BETWEEN 3920 MG AND 7840 MG WITHIN 1 MONTH
     Route: 048
     Dates: start: 20050301

REACTIONS (6)
  - ABNORMAL BEHAVIOUR [None]
  - CEREBRAL INFARCTION [None]
  - CEREBROVASCULAR ACCIDENT [None]
  - CONFUSIONAL STATE [None]
  - DRUG ABUSER [None]
  - SLEEP DISORDER [None]
